FAERS Safety Report 4646369-4 (Version None)
Quarter: 2005Q2

REPORT INFORMATION
  Report Type: 
  Country: None (occurrence: None)
  Receive Date: 20050421
  Receipt Date: 20050408
  Transmission Date: 20051028
  Serious: Yes (Hospitalization)
  Sender: FDA-Public Use
  Company Number: THYM-10469

PATIENT
  Age: 37 Year
  Sex: Female

DRUGS (15)
  1. THYMOGLOBULIN [Suspect]
     Indication: APLASTIC ANAEMIA
     Dosage: 350 MG QD IV
     Route: 042
     Dates: start: 20050403, end: 20050404
  2. THYMOGLOBULIN [Suspect]
     Indication: APLASTIC ANAEMIA
     Dosage: 250 MG QD IV
     Route: 042
     Dates: start: 20050405, end: 20050405
  3. TYLENOL (CAPLET) [Concomitant]
  4. CYCLOSPORINE [Concomitant]
  5. BENADRYL [Concomitant]
  6. COLACE [Concomitant]
  7. GRANULOCYTE COLONY STIMULATING FACTOR [Concomitant]
  8. PREVACID [Concomitant]
  9. PROVERA [Concomitant]
  10. INSULIN [Concomitant]
  11. LIDOCAINE [Concomitant]
  12. HEPARIN [Concomitant]
  13. SOLU-MEDROL [Concomitant]
  14. FLUCONAZOLE [Concomitant]
  15. BACTRIM [Concomitant]

REACTIONS (2)
  - BRADYCARDIA [None]
  - CHEST PAIN [None]
